FAERS Safety Report 4818996-2 (Version None)
Quarter: 2005Q4

REPORT INFORMATION
  Report Type: 
  Country: None (occurrence: None)
  Receive Date: 20051101
  Receipt Date: 20051101
  Transmission Date: 20060501
  Serious: Yes (Hospitalization)
  Sender: FDA-Public Use
  Company Number: None

PATIENT
  Age: 50 Year
  Sex: Male
  Weight: 121.1104 kg

DRUGS (1)
  1. PROPRANOLOL [Suspect]
     Indication: HYPERTENSION
     Dosage: 40MG   BID  PO
     Route: 048
     Dates: start: 20050211, end: 20050304

REACTIONS (2)
  - HALLUCINATION, AUDITORY [None]
  - HALLUCINATION, VISUAL [None]
